FAERS Safety Report 11082280 (Version 1)
Quarter: 2015Q2

REPORT INFORMATION
  Report Type: Spontaneous
  Country: US (occurrence: US)
  Receive Date: 20150501
  Receipt Date: 20150501
  Transmission Date: 20150821
  Serious: Yes (Other)
  Sender: FDA-Public Use
  Company Number: US-BEH-2015050623

PATIENT
  Sex: Female
  Weight: 59 kg

DRUGS (7)
  1. SODIUM CHLORIDE. [Concomitant]
     Active Substance: SODIUM CHLORIDE
  2. EPIPEN [Concomitant]
     Active Substance: EPINEPHRINE
  3. CALCIUM+D+MINERALS [Concomitant]
  4. FISH OIL [Concomitant]
     Active Substance: FISH OIL
  5. BERINERT [Suspect]
     Active Substance: HUMAN C1-ESTERASE INHIBITOR
     Indication: HEREDITARY ANGIOEDEMA
     Route: 042
  6. DIPHENHYDRAMINE [Concomitant]
     Active Substance: DIPHENHYDRAMINE
  7. ALBUTEROL. [Concomitant]
     Active Substance: ALBUTEROL

REACTIONS (1)
  - Hereditary angioedema [Unknown]
